FAERS Safety Report 7553965-3 (Version None)
Quarter: 2011Q2

REPORT INFORMATION
  Report Type: 
  Country: None (occurrence: None)
  Receive Date: 20110614
  Receipt Date: 20110614
  Transmission Date: 20111010
  Serious: Yes (Hospitalization)
  Sender: FDA-Public Use
  Company Number: None

PATIENT
  Sex: Female
  Weight: 60.3 kg

DRUGS (16)
  1. CALCIUM/VITAMIN D [Concomitant]
  2. MILK OF MAGNESIA TAB [Concomitant]
  3. PALONOSETRON [Concomitant]
  4. TAXOL [Suspect]
     Dosage: 134 MG
     Dates: end: 20110606
  5. ATIVAN [Concomitant]
  6. COMPAZINE [Concomitant]
  7. DEXAMETHASONE [Concomitant]
  8. VITAMIN D [Concomitant]
  9. BENADRYL [Concomitant]
  10. RANITIDINE [Concomitant]
  11. ZOFRAN [Concomitant]
  12. CARBOPLATIN [Suspect]
     Dosage: 608 MG
     Dates: end: 20110606
  13. CENTRUM SILVER [Concomitant]
  14. GLUCOSAMINE/CHONDROITIN [Concomitant]
  15. SENNA [Concomitant]
  16. MULTI-VITAMINS [Concomitant]

REACTIONS (7)
  - CONSTIPATION [None]
  - HAEMOGLOBIN DECREASED [None]
  - BLOOD GLUCOSE INCREASED [None]
  - GASTROINTESTINAL SOUNDS ABNORMAL [None]
  - VOMITING [None]
  - HAEMATOCRIT DECREASED [None]
  - NAUSEA [None]
